FAERS Safety Report 7207173-6 (Version None)
Quarter: 2011Q1

REPORT INFORMATION
  Report Type: 
  Country: None (occurrence: None)
  Receive Date: 20110103
  Receipt Date: 20110103
  Transmission Date: 20110831
  Serious: Yes (Hospitalization)
  Sender: FDA-Public Use
  Company Number: PHHO2008US11567

PATIENT
  Sex: Female
  Weight: 66.1 kg

DRUGS (2)
  1. AFINITOR [Suspect]
     Indication: CARCINOID TUMOUR
     Dosage: 10 MG, QD
     Route: 048
     Dates: start: 20071023
  2. SANDOSTATIN LAR [Suspect]
     Indication: CARCINOID TUMOUR
     Dosage: UNK
     Route: 030
     Dates: start: 20071023

REACTIONS (5)
  - URINARY TRACT INFECTION [None]
  - LIVER FUNCTION TEST ABNORMAL [None]
  - CONSTIPATION [None]
  - FLANK PAIN [None]
  - CHEST PAIN [None]
